FAERS Safety Report 9384269 (Version 1)
Quarter: 2013Q3

REPORT INFORMATION
  Report Type: Report from Study
  Country: CA (occurrence: CA)
  Receive Date: 20130705
  Receipt Date: 20130705
  Transmission Date: 20140515
  Serious: Yes (Other)
  Sender: FDA-Public Use
  Company Number: CA-ROCHE-1228142

PATIENT
  Age: 61 Year
  Sex: Female
  Weight: 95.3 kg

DRUGS (21)
  1. ACTEMRA [Suspect]
     Indication: RHEUMATOID ARTHRITIS
     Route: 042
     Dates: start: 20130220, end: 20130418
  2. RITUXAN [Suspect]
     Indication: RHEUMATOID ARTHRITIS
     Route: 042
     Dates: start: 20100122, end: 20100204
  3. METHOTREXATE [Concomitant]
     Route: 065
  4. FOLIC ACID [Concomitant]
  5. TYLENOL #3 (CANADA) [Concomitant]
  6. METFORMIN [Concomitant]
  7. HYDROCHLOROTHIAZIDE [Concomitant]
     Indication: BLOOD PRESSURE
  8. COVERSYL [Concomitant]
  9. EZETROL [Concomitant]
  10. ATENOLOL [Concomitant]
     Indication: BLOOD PRESSURE
  11. VITAMIN C [Concomitant]
  12. GLICLAZIDE [Concomitant]
  13. NITROGLYCERINE [Concomitant]
     Route: 060
  14. ADALAT XL [Concomitant]
  15. PREDNISONE [Concomitant]
  16. RAMIPRIL [Concomitant]
  17. LIPOFLAVONOID [Concomitant]
  18. OMEPRAZOLE [Concomitant]
  19. DIPHENHYDRAMINE HCL [Concomitant]
     Indication: PREMEDICATION
     Route: 048
     Dates: start: 20100122, end: 20100204
  20. ACETAMINOPHEN [Concomitant]
     Indication: PREMEDICATION
     Route: 048
     Dates: start: 20100122, end: 20100204
  21. METHYLPREDNISOLONE [Concomitant]
     Indication: PREMEDICATION
     Route: 042
     Dates: start: 20100122, end: 20100204

REACTIONS (3)
  - Treatment failure [Unknown]
  - Rash pruritic [Recovering/Resolving]
  - Skin reaction [Unknown]
